FAERS Safety Report 13740511 (Version 2)
Quarter: 2017Q3

REPORT INFORMATION
  Report Type: Spontaneous
  Country: FR (occurrence: FR)
  Receive Date: 20170711
  Receipt Date: 20170926
  Transmission Date: 20171127
  Serious: Yes (Hospitalization, Other)
  Sender: FDA-Public Use
  Company Number: FR-INDIVIOR LIMITED-INDV-103113-2017

PATIENT
  Sex: Male

DRUGS (5)
  1. SUBUTEX [Suspect]
     Active Substance: BUPRENORPHINE HYDROCHLORIDE
     Indication: PRODUCT USED FOR UNKNOWN INDICATION
     Dosage: ONE TABLET
     Route: 065
  2. STILNOX [Suspect]
     Active Substance: ZOLPIDEM TARTRATE
     Indication: PRODUCT USED FOR UNKNOWN INDICATION
     Dosage: 10MG TWO TABLETS
     Route: 048
  3. SERESTA [Suspect]
     Active Substance: OXAZEPAM
     Indication: PRODUCT USED FOR UNKNOWN INDICATION
     Dosage: 50MG TWO TABLETS
     Route: 048
  4. DIAZEPAM ROCHE [Suspect]
     Active Substance: DIAZEPAM
     Indication: PRODUCT USED FOR UNKNOWN INDICATION
     Dosage: FOUR 5MG TABLETS
     Route: 048
  5. NARCAN [Suspect]
     Active Substance: NALOXONE HYDROCHLORIDE
     Indication: PRODUCT USED FOR UNKNOWN INDICATION
     Dosage: UNK
     Route: 065

REACTIONS (8)
  - Drug abuse [Unknown]
  - Abnormal behaviour [Recovered/Resolved]
  - Vomiting [Recovered/Resolved]
  - Dysuria [Recovered/Resolved]
  - Toxicity to various agents [Unknown]
  - Pneumonia aspiration [Unknown]
  - Somnolence [Recovered/Resolved]
  - Substance abuse [Unknown]
